FAERS Safety Report 15242927 (Version 3)
Quarter: 2018Q4

REPORT INFORMATION
  Report Type: Spontaneous
  Country: DE (occurrence: DE)
  Receive Date: 20180806
  Receipt Date: 20181017
  Transmission Date: 20190204
  Serious: Yes (Other)
  Sender: FDA-Public Use
  Company Number: DE-BIOGEN-2018BI00617437

PATIENT
  Age: 32 Year
  Sex: Female
  Weight: 63 kg

DRUGS (2)
  1. TECFIDERA [Suspect]
     Active Substance: DIMETHYL FUMARATE
     Dosage: MAINTENANCE DOSE
     Route: 048
     Dates: start: 20180706
  2. TECFIDERA [Suspect]
     Active Substance: DIMETHYL FUMARATE
     Indication: MULTIPLE SCLEROSIS
     Dosage: STARTING DOSE
     Route: 048
     Dates: start: 201411, end: 20180622

REACTIONS (2)
  - Maternal exposure during pregnancy [Recovered/Resolved]
  - Haemorrhage in pregnancy [Not Recovered/Not Resolved]

NARRATIVE: CASE EVENT DATE: 20180703
